FAERS Safety Report 8214049-4 (Version None)
Quarter: 2012Q1

REPORT INFORMATION
  Report Type: 
  Country: None (occurrence: None)
  Receive Date: 20120314
  Receipt Date: 20120314
  Transmission Date: 20120608
  Serious: No
  Sender: FDA-Public Use
  Company Number: None

PATIENT
  Sex: Male

DRUGS (1)
  1. EGRIFTA [Suspect]
     Indication: LIPODYSTROPHY ACQUIRED
     Dosage: 2 VIALS Q2 SC
     Route: 058
     Dates: start: 20120222

REACTIONS (4)
  - DIARRHOEA [None]
  - PARALYSIS [None]
  - ARTHRALGIA [None]
  - MUSCULOSKELETAL PAIN [None]
